FAERS Safety Report 6525518-7 (Version None)
Quarter: 2010Q1

REPORT INFORMATION
  Report Type: 
  Country: None (occurrence: None)
  Receive Date: 20100104
  Receipt Date: 20091217
  Transmission Date: 20100710
  Serious: No
  Sender: FDA-Public Use
  Company Number: US-B.I. PHARMACEUTICALS,INC./RIDGEFIELD-2009-BP-14515BP

PATIENT

DRUGS (2)
  1. FLOMAX [Suspect]
     Route: 048
  2. PROSCAR [Concomitant]
     Dosage: 10 MG

REACTIONS (1)
  - HYPOTENSION [None]
